FAERS Safety Report 5976507-2 (Version None)
Quarter: 2008Q4

REPORT INFORMATION
  Report Type: 
  Country: None (occurrence: None)
  Receive Date: 20081202
  Receipt Date: 20081125
  Transmission Date: 20090506
  Serious: Yes (Other)
  Sender: FDA-Public Use
  Company Number: US-GILEAD-2008-0019192

PATIENT
  Age: 56 Year
  Sex: Male

DRUGS (1)
  1. HEPSERA [Suspect]

REACTIONS (4)
  - ERYTHEMA MULTIFORME [None]
  - HEPATITIS B DNA INCREASED [None]
  - PROSTATIC DISORDER [None]
  - RENAL IMPAIRMENT [None]
